FAERS Safety Report 15339593 (Version 1)
Quarter: 2018Q3

REPORT INFORMATION
  Report Type: Report from Study
  Country: JP (occurrence: JP)
  Receive Date: 20180831
  Receipt Date: 20180831
  Transmission Date: 20181010
  Serious: Yes (Other)
  Sender: FDA-Public Use
  Company Number: JP-ELI_LILLY_AND_COMPANY-JP201808013225

PATIENT
  Age: 53 Year
  Sex: Female
  Weight: 72 kg

DRUGS (24)
  1. AZILVA [Concomitant]
     Active Substance: AZILSARTAN KAMEDOXOMIL
     Dosage: UNK, UNKNOWN
     Route: 048
     Dates: end: 20170127
  2. FERROMIA [Concomitant]
     Active Substance: SODIUM FERROUS CITRATE
     Dosage: UNK, UNKNOWN
     Route: 048
     Dates: end: 20160408
  3. PRASUGREL HYDROCHLORIDE [Suspect]
     Active Substance: PRASUGREL HYDROCHLORIDE
     Indication: ANGINA PECTORIS
     Dosage: 20 MG, DAILY
     Route: 048
     Dates: start: 20160331, end: 20160331
  4. ASPIRIN                            /00002701/ [Concomitant]
     Active Substance: ASPIRIN
     Dosage: 100 MG, DAILY
     Route: 048
     Dates: end: 20171114
  5. EQUA [Concomitant]
     Active Substance: VILDAGLIPTIN
     Dosage: UNK, UNKNOWN
     Route: 048
     Dates: start: 20171114
  6. MEYLON [Concomitant]
     Active Substance: SODIUM BICARBONATE
     Dosage: UNK, UNKNOWN
     Route: 042
     Dates: start: 20180315, end: 20180315
  7. PRASUGREL HYDROCHLORIDE [Suspect]
     Active Substance: PRASUGREL HYDROCHLORIDE
     Dosage: 3.75 MG, DAILY
     Route: 048
     Dates: start: 20160401
  8. CLOPIDOGREL [Concomitant]
     Active Substance: CLOPIDOGREL BISULFATE
     Dosage: 75 MG, DAILY
     Route: 048
     Dates: end: 20160316
  9. NEXIUM [Concomitant]
     Active Substance: ESOMEPRAZOLE MAGNESIUM
     Dosage: UNK UNK, UNKNOWN
     Route: 048
  10. EQUMET [Concomitant]
     Active Substance: METFORMIN HYDROCHLORIDE\VILDAGLIPTIN
     Dosage: UNK, UNKNOWN
     Route: 048
     Dates: start: 20160411, end: 20171114
  11. BISOPROLOL                         /00802602/ [Concomitant]
     Active Substance: BISOPROLOL
     Dosage: UNK, UNKNOWN
     Route: 048
     Dates: start: 20170224
  12. ROSUVASTATIN                       /01588602/ [Concomitant]
     Active Substance: ROSUVASTATIN CALCIUM
     Dosage: UNK, UNKNOWN
     Route: 048
     Dates: start: 20171115
  13. JARDIANCE [Concomitant]
     Active Substance: EMPAGLIFLOZIN
     Dosage: UNK, UNKNOWN
     Route: 048
     Dates: start: 20170607
  14. MAGMITT [Concomitant]
     Active Substance: MAGNESIUM OXIDE
     Dosage: UNK, UNKNOWN
     Route: 048
     Dates: end: 20160315
  15. GLIMEPIRIDE. [Concomitant]
     Active Substance: GLIMEPIRIDE
     Dosage: UNK, UNKNOWN
     Route: 048
     Dates: start: 20171114
  16. CILNIDIPINE [Concomitant]
     Active Substance: CILNIDIPINE
     Dosage: UNK, UNKNOWN
     Route: 048
     Dates: start: 20171114, end: 20180313
  17. ADETPHOS [Concomitant]
     Active Substance: ADENOSINE TRIPHOSPHATE
     Dosage: UNK, UNKNOWN
     Route: 048
     Dates: start: 20180315, end: 20180317
  18. MERISLON [Concomitant]
     Active Substance: BETAHISTINE MESILATE
     Dosage: UNK, UNKNOWN
     Route: 048
     Dates: start: 20180315, end: 20180317
  19. ELIETEN                            /00041901/ [Concomitant]
     Active Substance: METOCLOPRAMIDE
     Dosage: UNK, UNKNOWN
     Route: 041
     Dates: start: 20180315, end: 20180315
  20. ASPIRIN                            /00002701/ [Concomitant]
     Active Substance: ASPIRIN
     Dosage: 100 MG, DAILY
     Route: 048
     Dates: start: 20160331, end: 20160331
  21. CANAGLU [Concomitant]
     Active Substance: CANAGLIFLOZIN
     Dosage: UNK, UNKNOWN
     Route: 048
     Dates: start: 20160411, end: 20170606
  22. ATEDIO [Concomitant]
     Dosage: UNK, UNKNOWN
     Route: 048
     Dates: start: 20170128
  23. CRESTOR [Concomitant]
     Active Substance: ROSUVASTATIN CALCIUM
     Dosage: UNK, UNKNOWN
     Route: 048
     Dates: end: 20171114
  24. DOXAZOSIN [Concomitant]
     Active Substance: DOXAZOSIN\DOXAZOSIN MESYLATE
     Dosage: UNK, UNKNOWN
     Route: 048
     Dates: start: 20171114

REACTIONS (1)
  - Cerebral infarction [Recovering/Resolving]

NARRATIVE: CASE EVENT DATE: 20180315
